FAERS Safety Report 8164798-1 (Version None)
Quarter: 2012Q1

REPORT INFORMATION
  Report Type: 
  Country: None (occurrence: None)
  Receive Date: 20120227
  Receipt Date: 20120215
  Transmission Date: 20120608
  Serious: No
  Sender: FDA-Public Use
  Company Number: US-BIOGENIDEC-2012BI006044

PATIENT
  Sex: Male

DRUGS (3)
  1. TYSABRI [Suspect]
     Route: 042
     Dates: start: 20091210, end: 20110602
  2. TYSABRI [Suspect]
     Indication: MULTIPLE SCLEROSIS
     Route: 042
     Dates: start: 20090514, end: 20091112
  3. TYSABRI [Suspect]
     Route: 042
     Dates: start: 20111121

REACTIONS (3)
  - ARTHRITIS [None]
  - STRESS [None]
  - MUSCULOSKELETAL DISORDER [None]
